FAERS Safety Report 23467659 (Version 1)
Quarter: 2024Q1

REPORT INFORMATION
  Report Type: Spontaneous
  Country: US (occurrence: US)
  Receive Date: 20240201
  Receipt Date: 20240201
  Transmission Date: 20240410
  Serious: Yes (Other)
  Sender: FDA-Public Use
  Company Number: US-SUNPHARMA-2024R1-429399AA

PATIENT
  Age: 68 Year
  Sex: Female

DRUGS (2)
  1. GEMCITABINE [Suspect]
     Active Substance: GEMCITABINE
     Indication: Intracholecystic papillary neoplasm
     Dosage: UNKNOWN
     Route: 065
  2. ABRAXANE [Suspect]
     Active Substance: PACLITAXEL
     Indication: Intracholecystic papillary neoplasm
     Dosage: UNKNOWN
     Route: 065

REACTIONS (1)
  - Duodenal obstruction [Unknown]
